FAERS Safety Report 9526173 (Version 1)
Quarter: 2013Q3

REPORT INFORMATION
  Report Type: Spontaneous
  Country: US (occurrence: US)
  Receive Date: 20130916
  Receipt Date: 20130916
  Transmission Date: 20140515
  Serious: Yes (Hospitalization, Other)
  Sender: FDA-Public Use
  Company Number: US-AMGEN-USASP2013064431

PATIENT
  Age: 61 Year
  Sex: Female

DRUGS (1)
  1. ENBREL [Suspect]
     Indication: PSORIATIC ARTHROPATHY
     Dosage: 50 MG, QWK
     Route: 065
     Dates: end: 201306

REACTIONS (4)
  - Lung adenocarcinoma [Recovered/Resolved]
  - Precancerous skin lesion [Recovered/Resolved]
  - Sensation of foreign body [Not Recovered/Not Resolved]
  - Infection [Recovered/Resolved]
